FAERS Safety Report 21670280 (Version 1)
Quarter: 2022Q4

REPORT INFORMATION
  Report Type: Report from Study
  Country: US (occurrence: US)
  Receive Date: 20221201
  Receipt Date: 20221201
  Transmission Date: 20230112
  Serious: No
  Sender: FDA-Public Use
  Company Number: US-ESPERIONTHERAPEUTICS-2022USA01973

PATIENT
  Age: 72 Year
  Sex: Male
  Weight: 97.506 kg

DRUGS (3)
  1. BEMPEDOIC ACID [Suspect]
     Active Substance: BEMPEDOIC ACID
     Indication: Low density lipoprotein increased
     Dosage: 1 TABLET, QD
     Route: 048
     Dates: start: 20220908, end: 202209
  2. BEMPEDOIC ACID [Suspect]
     Active Substance: BEMPEDOIC ACID
     Dosage: 180 MILLIGRAM, QD
     Route: 048
     Dates: start: 2022, end: 2022
  3. METFORMIN [Suspect]
     Active Substance: METFORMIN HYDROCHLORIDE
     Indication: Product used for unknown indication
     Dosage: UNK
     Route: 065

REACTIONS (4)
  - Malaise [Recovered/Resolved]
  - Nausea [Recovered/Resolved]
  - Dizziness [Recovered/Resolved]
  - Abdominal pain upper [Recovered/Resolved]

NARRATIVE: CASE EVENT DATE: 20220908
